FAERS Safety Report 17948379 (Version 1)
Quarter: 2020Q2

REPORT INFORMATION
  Report Type: Spontaneous
  Country: US (occurrence: US)
  Receive Date: 20200625
  Receipt Date: 20200625
  Transmission Date: 20200714
  Serious: No
  Sender: FDA-Public Use
  Company Number: None

PATIENT
  Age: 33 Year
  Sex: Male
  Weight: 61.23 kg

DRUGS (2)
  1. GENERIC CLOBETASOL SPRAY [Suspect]
     Active Substance: CLOBETASOL
  2. GENERIC CLOBETASOL CREAM [Suspect]
     Active Substance: CLOBETASOL

REACTIONS (3)
  - Drug ineffective [None]
  - Skin burning sensation [None]
  - Dry skin [None]
